FAERS Safety Report 5623926-X (Version None)
Quarter: 2008Q1

REPORT INFORMATION
  Report Type: 
  Country: None (occurrence: None)
  Receive Date: 20080207
  Receipt Date: 20080123
  Transmission Date: 20080703
  Serious: Yes (Death, Hospitalization)
  Sender: FDA-Public Use
  Company Number: S08-ITA-00386-01

PATIENT
  Age: 84 Year
  Sex: Male

DRUGS (4)
  1. CITALOPRAM HYDROBROMIDE [Suspect]
     Dosage: 10 MG QD PO
     Route: 048
     Dates: start: 20070101, end: 20071214
  2. WARFARIN SODIUM [Suspect]
     Indication: ATRIAL FIBRILLATION
     Dosage: 10 MG QD PO
     Route: 048
     Dates: start: 20070101, end: 20071214
  3. QUINAPRILE (QUINAPRIL) [Concomitant]
  4. NIFEDIPINE [Concomitant]

REACTIONS (3)
  - CEREBRAL HAEMATOMA [None]
  - CEREBROVASCULAR DISORDER [None]
  - PARKINSON'S DISEASE [None]
